FAERS Safety Report 7399228-0 (Version None)
Quarter: 2011Q2

REPORT INFORMATION
  Report Type: 
  Country: None (occurrence: None)
  Receive Date: 20110407
  Receipt Date: 20110405
  Transmission Date: 20111010
  Serious: Yes (Death, Other)
  Sender: FDA-Public Use
  Company Number: JP-BRACCO-004688

PATIENT
  Age: 71 Year
  Sex: Female
  Weight: 57 kg

DRUGS (2)
  1. IOPAMIDOL [Suspect]
     Indication: ANGINA PECTORIS
     Route: 042
     Dates: start: 20110315, end: 20110315
  2. IOPAMIDOL [Suspect]
     Indication: CATHETERISATION CARDIAC
     Route: 042
     Dates: start: 20110315, end: 20110315

REACTIONS (2)
  - HAEMORRHAGE [None]
  - ANAPHYLACTIC SHOCK [None]
